FAERS Safety Report 13152297 (Version 3)
Quarter: 2017Q1

REPORT INFORMATION
  Report Type: Spontaneous
  Country: BR (occurrence: BR)
  Receive Date: 20170125
  Receipt Date: 20170313
  Transmission Date: 20170428
  Serious: Yes (Other)
  Sender: FDA-Public Use
  Company Number: BR-ABBVIE-17P-020-1852951-00

PATIENT
  Age: 66 Year
  Sex: Female
  Weight: 64.4 kg

DRUGS (3)
  1. SYNTHROID [Suspect]
     Active Substance: LEVOTHYROXINE SODIUM
     Route: 065
     Dates: end: 201601
  2. SYNTHROID [Suspect]
     Active Substance: LEVOTHYROXINE SODIUM
     Indication: HYPOTHYROIDISM
     Dosage: DAILY DOSE: 25 MCG; MORNING (FASTING)
     Route: 048
     Dates: start: 20160206
  3. SYNTHROID [Suspect]
     Active Substance: LEVOTHYROXINE SODIUM
     Route: 065
     Dates: start: 1986

REACTIONS (8)
  - Joint neoplasm [Unknown]
  - Nail disorder [Not Recovered/Not Resolved]
  - Onychoclasis [Not Recovered/Not Resolved]
  - Blood cholesterol decreased [Not Recovered/Not Resolved]
  - Therapy cessation [Unknown]
  - Thyroid mass [Unknown]
  - Psychiatric symptom [Recovered/Resolved]
  - Suspected counterfeit product [Unknown]

NARRATIVE: CASE EVENT DATE: 201509
